FAERS Safety Report 24928888 (Version 1)
Quarter: 2025Q1

REPORT INFORMATION
  Report Type: Spontaneous
  Country: US (occurrence: US)
  Receive Date: 20250205
  Receipt Date: 20250205
  Transmission Date: 20250409
  Serious: No
  Sender: pharmaAND
  Company Number: US-Pharmaand-2024000080

PATIENT
  Sex: Female

DRUGS (3)
  1. RUBRACA [Suspect]
     Active Substance: RUCAPARIB CAMSYLATE
     Indication: Metastases to ovary
     Dosage: 2 TABLETS TWICE DAILY
     Route: 048
     Dates: start: 20231019
  2. RUBRACA [Suspect]
     Active Substance: RUCAPARIB CAMSYLATE
     Dosage: 1 TABLET TWICE DAILY
     Route: 048
     Dates: end: 20240118
  3. RUBRACA [Suspect]
     Active Substance: RUCAPARIB CAMSYLATE
     Dosage: 1 TABLET DAILY AT NIGHT
     Route: 048
     Dates: start: 202403

REACTIONS (9)
  - Ligament sprain [Recovering/Resolving]
  - Wound [Unknown]
  - Hyperhidrosis [Unknown]
  - Product dose omission issue [Unknown]
  - Contusion [Recovering/Resolving]
  - Joint swelling [Recovering/Resolving]
  - Abdominal distension [Recovered/Resolved]
  - Nausea [Unknown]
  - Fatigue [Unknown]
